FAERS Safety Report 5764792-1 (Version None)
Quarter: 2008Q2

REPORT INFORMATION
  Report Type: 
  Country: None (occurrence: None)
  Receive Date: 20080610
  Receipt Date: 20080610
  Transmission Date: 20081010
  Serious: Yes (Disabling)
  Sender: FDA-Public Use
  Company Number: None

PATIENT
  Age: 25 Year
  Sex: Female
  Weight: 77.1115 kg

DRUGS (1)
  1. PROMETRIUM [Suspect]
     Indication: PROGESTERONE DECREASED
     Dosage: 200 MG 1 DAILY PO
     Route: 048

REACTIONS (1)
  - MEDICATION ERROR [None]
